FAERS Safety Report 5197311-1 (Version None)
Quarter: 2007Q1

REPORT INFORMATION
  Report Type: 
  Country: None (occurrence: None)
  Receive Date: 20070103
  Receipt Date: 20061220
  Transmission Date: 20070707
  Serious: Yes (Hospitalization)
  Sender: FDA-Public Use
  Company Number: US-AMGEN-US204654

PATIENT
  Sex: Male
  Weight: 102.2 kg

DRUGS (11)
  1. PROCRIT [Suspect]
     Indication: RENAL FAILURE CHRONIC
     Route: 065
     Dates: start: 20060901
  2. BACTRIM DS [Concomitant]
     Route: 065
  3. TOPAMAX [Concomitant]
     Route: 065
  4. CIPRO [Concomitant]
     Route: 065
  5. CLONIDINE [Concomitant]
     Route: 065
  6. TOPROL-XL [Concomitant]
     Route: 065
  7. LABETALOL HCL [Concomitant]
     Route: 065
  8. ACTOS [Concomitant]
     Route: 065
  9. GLYBURIDE [Concomitant]
     Route: 065
  10. UNSPECIFIED INHALER [Concomitant]
     Route: 055
  11. LEXAPRO [Concomitant]
     Route: 065

REACTIONS (3)
  - CHRONIC OBSTRUCTIVE PULMONARY DISEASE [None]
  - NAUSEA [None]
  - PNEUMONIA [None]
